FAERS Safety Report 4713763-2 (Version None)
Quarter: 2005Q3

REPORT INFORMATION
  Report Type: 
  Country: None (occurrence: None)
  Receive Date: 20050713
  Receipt Date: 20050303
  Transmission Date: 20060218
  Serious: Yes (Hospitalization)
  Sender: FDA-Public Use
  Company Number: US-MERCK-0503USA00845

PATIENT
  Age: 78 Year
  Sex: Female
  Weight: 64 kg

DRUGS (11)
  1. VIOXX [Suspect]
     Indication: PAIN IN EXTREMITY
     Route: 048
     Dates: start: 20030225, end: 20040701
  2. VIOXX [Suspect]
     Route: 048
     Dates: start: 20011130
  3. VIOXX [Suspect]
     Indication: MONARTHRITIS
     Route: 048
     Dates: start: 20030225, end: 20040701
  4. VIOXX [Suspect]
     Route: 048
     Dates: start: 20011130
  5. TAGAMET [Concomitant]
     Route: 065
  6. VITAMINS (UNSPECIFIED) [Concomitant]
     Route: 065
  7. CALCIUM (UNSPECIFIED) [Concomitant]
     Route: 065
  8. [THERAPY UNSPECIFIED] [Concomitant]
     Route: 065
  9. PREVACID [Concomitant]
     Route: 065
  10. TYLENOL [Concomitant]
     Route: 065
  11. CODEINE [Concomitant]
     Route: 065

REACTIONS (16)
  - AGEUSIA [None]
  - AORTIC VALVE SCLEROSIS [None]
  - ATELECTASIS [None]
  - BRONCHITIS [None]
  - BURNING SENSATION [None]
  - CEREBROVASCULAR ACCIDENT [None]
  - DIZZINESS [None]
  - FACIAL PAIN [None]
  - HYPERTENSION [None]
  - HYPOAESTHESIA [None]
  - MITRAL VALVE INCOMPETENCE [None]
  - OTITIS MEDIA [None]
  - PLANTAR FASCIITIS [None]
  - SINUSITIS [None]
  - THERAPY NON-RESPONDER [None]
  - TRICUSPID VALVE INCOMPETENCE [None]
